FAERS Safety Report 15900949 (Version 3)
Quarter: 2020Q4

REPORT INFORMATION
  Report Type: Spontaneous
  Country: US (occurrence: US)
  Receive Date: 20190201
  Receipt Date: 20201007
  Transmission Date: 20210113
  Serious: Yes (Other)
  Sender: FDA-Public Use
  Company Number: US-GILEAD-2019-0387821

PATIENT
  Age: 59 Year
  Sex: Male
  Weight: 84.81 kg

DRUGS (33)
  1. ATRIPLA [Suspect]
     Active Substance: EFAVIRENZ\EMTRICITABINE\TENOFOVIR DISOPROXIL FUMARATE
     Indication: HIV INFECTION
     Dosage: UNK
     Route: 048
     Dates: start: 20130404, end: 20140918
  2. AZITHROMYCIN ANHYDROUS. [Concomitant]
     Active Substance: AZITHROMYCIN ANHYDROUS
  3. OXYCODONE AND ACETAMINOPHEN [Concomitant]
     Active Substance: ACETAMINOPHEN\OXYCODONE HYDROCHLORIDE
  4. NORVIR [Concomitant]
     Active Substance: RITONAVIR
  5. BUPROPION. [Concomitant]
     Active Substance: BUPROPION
  6. METRONIDAZOLE. [Concomitant]
     Active Substance: METRONIDAZOLE
  7. ONDANSETRON [Concomitant]
     Active Substance: ONDANSETRON
  8. PREDNISONE. [Concomitant]
     Active Substance: PREDNISONE
  9. VENLAFAXINE [Concomitant]
     Active Substance: VENLAFAXINE HYDROCHLORIDE
  10. TRUVADA [Suspect]
     Active Substance: EMTRICITABINE\TENOFOVIR DISOPROXIL FUMARATE
     Indication: HIV INFECTION
     Dosage: UNK
     Route: 048
     Dates: start: 20050924, end: 20130209
  11. GENVOYA [Concomitant]
     Active Substance: COBICISTAT\ELVITEGRAVIR\EMTRICITABINE\TENOFOVIR ALAFENAMIDE FUMARATE
  12. BACLOFEN. [Concomitant]
     Active Substance: BACLOFEN
  13. CLINDAMYCIN. [Concomitant]
     Active Substance: CLINDAMYCIN
  14. FUROSEMIDE. [Concomitant]
     Active Substance: FUROSEMIDE
  15. LISINOPRIL. [Concomitant]
     Active Substance: LISINOPRIL
  16. NAPROXEN. [Concomitant]
     Active Substance: NAPROXEN
  17. OMEPRAZOLE. [Concomitant]
     Active Substance: OMEPRAZOLE
  18. DULOXETINE. [Concomitant]
     Active Substance: DULOXETINE
  19. LYRICA [Concomitant]
     Active Substance: PREGABALIN
  20. METHSCOPOLAMINE BROMIDE. [Concomitant]
     Active Substance: METHSCOPOLAMINE BROMIDE
  21. CEPHALEXINE [Concomitant]
     Active Substance: CEPHALEXIN
  22. LEVOFLOXACIN. [Concomitant]
     Active Substance: LEVOFLOXACIN
  23. PAROXETINE HCL [Concomitant]
     Active Substance: PAROXETINE HYDROCHLORIDE
  24. AMLODIPINE BESILATE [Concomitant]
     Active Substance: AMLODIPINE BESYLATE
  25. AMOXICILLIN. [Concomitant]
     Active Substance: AMOXICILLIN
  26. ATORVASTATIN [Concomitant]
     Active Substance: ATORVASTATIN
  27. CYCLOBENZAPRINE. [Concomitant]
     Active Substance: CYCLOBENZAPRINE
  28. PRAVASTATIN. [Concomitant]
     Active Substance: PRAVASTATIN
  29. PROMETHAZINE [Concomitant]
     Active Substance: PROMETHAZINE HYDROCHLORIDE
  30. STRIBILD [Suspect]
     Active Substance: COBICISTAT\ELVITEGRAVIR\EMTRICITABINE\TENOFOVIR DISOPROXIL FUMARATE
     Indication: HIV INFECTION
     Dosage: UNK
     Route: 048
     Dates: start: 20141002, end: 20180529
  31. REYATAZ [Concomitant]
     Active Substance: ATAZANAVIR SULFATE
  32. TAMSULOSIN [Concomitant]
     Active Substance: TAMSULOSIN
  33. TRAMADOL. [Concomitant]
     Active Substance: TRAMADOL

REACTIONS (14)
  - Osteoporosis [Unknown]
  - Rib fracture [Unknown]
  - Emotional distress [Not Recovered/Not Resolved]
  - Bone density decreased [Unknown]
  - Osteopenia [Not Recovered/Not Resolved]
  - Fall [Not Recovered/Not Resolved]
  - Depression [Not Recovered/Not Resolved]
  - Anhedonia [Not Recovered/Not Resolved]
  - Economic problem [Not Recovered/Not Resolved]
  - Cartilage injury [Not Recovered/Not Resolved]
  - Upper limb fracture [Unknown]
  - Pain [Not Recovered/Not Resolved]
  - Radius fracture [Not Recovered/Not Resolved]
  - Anxiety [Not Recovered/Not Resolved]

NARRATIVE: CASE EVENT DATE: 20050924
